FAERS Safety Report 9600627 (Version 2)
Quarter: 2013Q4

REPORT INFORMATION
  Report Type: Spontaneous
  Country: US (occurrence: US)
  Receive Date: 20131004
  Receipt Date: 20131004
  Transmission Date: 20140711
  Serious: No
  Sender: FDA-Public Use
  Company Number: US-AMGEN-USASP2013025985

PATIENT
  Age: 58 Year
  Sex: Male

DRUGS (1)
  1. ENBREL [Suspect]
     Indication: PSORIASIS
     Dosage: 50 MG, QWK
     Route: 058
     Dates: start: 20130320

REACTIONS (7)
  - Burning sensation [Not Recovered/Not Resolved]
  - Feeling abnormal [Not Recovered/Not Resolved]
  - Dizziness [Recovered/Resolved]
  - Palpitations [Not Recovered/Not Resolved]
  - Skin lesion [Not Recovered/Not Resolved]
  - Abdominal discomfort [Recovered/Resolved]
  - Psoriasis [Not Recovered/Not Resolved]
